FAERS Safety Report 23646285 (Version 1)
Quarter: 2024Q1

REPORT INFORMATION
  Report Type: Spontaneous
  Country: US (occurrence: US)
  Receive Date: 20240319
  Receipt Date: 20240319
  Transmission Date: 20240410
  Serious: Yes (Hospitalization)
  Sender: FDA-Public Use
  Company Number: US-AMAROX PHARMA-HET2024US00722

PATIENT
  Age: 39 Year
  Sex: Male

DRUGS (1)
  1. SILDENAFIL [Suspect]
     Active Substance: SILDENAFIL
     Indication: Sexual dysfunction
     Dosage: 50 MILLIGRAM, APPROXIMATELY TWO TO THREE TIMES WEEKLY BEFORE SEXUAL ACTIVITY
     Route: 065

REACTIONS (2)
  - Thrombosis corpora cavernosa [Recovered/Resolved]
  - Intentional product misuse [Unknown]
